FAERS Safety Report 9253573 (Version 1)
Quarter: 2013Q2

REPORT INFORMATION
  Report Type: Spontaneous
  Country: US (occurrence: US)
  Receive Date: 20130425
  Receipt Date: 20130425
  Transmission Date: 20140414
  Serious: No
  Sender: FDA-Public Use
  Company Number: US-BIOGENIDEC-2013BI036784

PATIENT
  Sex: Female

DRUGS (1)
  1. TYSABRI [Suspect]
     Indication: MULTIPLE SCLEROSIS
     Route: 042
     Dates: start: 20120822, end: 20120919

REACTIONS (6)
  - Tremor [Unknown]
  - Muscle atrophy [Unknown]
  - Back pain [Unknown]
  - Diplopia [Unknown]
  - Deafness [Unknown]
  - Local swelling [Unknown]
